FAERS Safety Report 12382076 (Version 13)
Quarter: 2018Q1

REPORT INFORMATION
  Report Type: Report from Study
  Country: JP (occurrence: JP)
  Receive Date: 20160518
  Receipt Date: 20180309
  Transmission Date: 20180508
  Serious: Yes (Hospitalization, Other)
  Sender: FDA-Public Use
  Company Number: JP-BRISTOL-MYERS SQUIBB COMPANY-BMS-2016-036419

PATIENT
  Age: 46 Year
  Sex: Male
  Weight: 79 kg

DRUGS (6)
  1. OPDIVO [Suspect]
     Active Substance: NIVOLUMAB
     Indication: PRODUCT USED FOR UNKNOWN INDICATION
     Dosage: 2 MG/KG, UNK
     Route: 065
     Dates: start: 20151203, end: 20151203
  2. IPILIMUMAB [Suspect]
     Active Substance: IPILIMUMAB
     Indication: MALIGNANT MELANOMA STAGE IV
     Dosage: 3 MG/KG, Q3WK
     Route: 042
     Dates: start: 20160408, end: 20160524
  3. OPDIVO [Suspect]
     Active Substance: NIVOLUMAB
     Indication: PRODUCT USED FOR UNKNOWN INDICATION
     Dosage: 2 MG/KG, UNK
     Route: 065
     Dates: start: 20160114, end: 20160114
  4. OPDIVO [Suspect]
     Active Substance: NIVOLUMAB
     Indication: PRODUCT USED FOR UNKNOWN INDICATION
     Dosage: 2 MG/KG, UNK
     Route: 065
     Dates: start: 20160204, end: 20160204
  5. OPDIVO [Suspect]
     Active Substance: NIVOLUMAB
     Indication: MALIGNANT MELANOMA STAGE IV
     Dosage: 2 MG/KG, UNK
     Route: 065
     Dates: start: 20151110, end: 20151110
  6. OPDIVO [Suspect]
     Active Substance: NIVOLUMAB
     Indication: PRODUCT USED FOR UNKNOWN INDICATION
     Dosage: 2 MG/KG, UNK
     Route: 065
     Dates: start: 20151224, end: 20151224

REACTIONS (13)
  - Urticaria [Recovered/Resolved]
  - Liver disorder [Not Recovered/Not Resolved]
  - Pyrexia [Recovered/Resolved]
  - Otitis media [Recovered/Resolved]
  - Hyperthyroidism [Recovered/Resolved]
  - Skin depigmentation [Unknown]
  - Leukoderma [Not Recovered/Not Resolved]
  - Off label use [Unknown]
  - Facial paralysis [Recovered/Resolved]
  - Iridocyclitis [Recovered/Resolved]
  - Tinnitus [Unknown]
  - Achromotrichia acquired [Not Recovered/Not Resolved]
  - Headache [Unknown]

NARRATIVE: CASE EVENT DATE: 20160415
